FAERS Safety Report 7957548-2 (Version None)
Quarter: 2011Q4

REPORT INFORMATION
  Report Type: 
  Country: None (occurrence: None)
  Receive Date: 20111205
  Receipt Date: 20110926
  Transmission Date: 20120403
  Serious: Yes (Other)
  Sender: FDA-Public Use
  Company Number: JP-GLAXOSMITHKLINE-B0751632A

PATIENT
  Sex: Male

DRUGS (9)
  1. CLONAZEPAM [Concomitant]
     Indication: EPILEPSY
     Dosage: 1.2MG PER DAY
     Route: 048
  2. LAMICTAL [Suspect]
     Dosage: 25MG PER DAY
     Route: 048
     Dates: start: 20110818, end: 20110831
  3. LAMICTAL [Suspect]
     Dosage: 50MG PER DAY
     Route: 048
     Dates: start: 20110901
  4. VALPROATE SODIUM [Concomitant]
     Route: 048
  5. DANTRIUM [Concomitant]
     Indication: MUSCLE TIGHTNESS
     Dosage: 75MG PER DAY
     Route: 048
  6. LAMICTAL [Suspect]
     Indication: EPILEPSY
     Dosage: 25MG ALTERNATE DAYS
     Route: 048
     Dates: start: 20110804, end: 20110817
  7. LAMICTAL [Suspect]
     Dosage: 100MG PER DAY
     Route: 048
     Dates: start: 20110915
  8. TIZANIDINE HCL [Concomitant]
     Indication: MUSCLE TIGHTNESS
     Dosage: 3.9MG PER DAY
     Route: 048
  9. ZONISAMIDE [Concomitant]
     Indication: EPILEPSY
     Dosage: 300MG PER DAY
     Route: 048
     Dates: start: 20000101

REACTIONS (14)
  - MONOCYTE COUNT INCREASED [None]
  - BLISTER [None]
  - EYE DISCHARGE [None]
  - C-REACTIVE PROTEIN INCREASED [None]
  - STEVENS-JOHNSON SYNDROME [None]
  - ERYTHEMA [None]
  - PYREXIA [None]
  - EOSINOPHIL COUNT DECREASED [None]
  - LYMPHOCYTE COUNT INCREASED [None]
  - NEUTROPHIL COUNT DECREASED [None]
  - HYPERAEMIA [None]
  - RASH PUSTULAR [None]
  - CELLULITIS [None]
  - SKIN NECROSIS [None]
